FAERS Safety Report 24894812 (Version 1)
Quarter: 2025Q1

REPORT INFORMATION
  Report Type: Spontaneous
  Country: US (occurrence: US)
  Receive Date: 20250128
  Receipt Date: 20250128
  Transmission Date: 20250408
  Serious: Yes (Life-Threatening, Other)
  Sender: LOREAL
  Company Number: US-LOREAL USA SD, INC.-2025LOR00003

PATIENT
  Sex: Male

DRUGS (1)
  1. CERAVE ACNE FOAMING CREAMWASH [Suspect]
     Active Substance: BENZOYL PEROXIDE
     Dates: start: 20250109, end: 20250109

REACTIONS (12)
  - Hypersensitivity [Recovered/Resolved]
  - Dyspnoea [Recovered/Resolved]
  - Chest discomfort [Recovered/Resolved]
  - Throat tightness [Recovered/Resolved]
  - Feeling hot [Recovered/Resolved]
  - Skin burning sensation [Recovered/Resolved]
  - Pain of skin [Recovered/Resolved]
  - Erythema [Recovered/Resolved]
  - Pruritus [Recovered/Resolved]
  - Rash papular [Recovered/Resolved]
  - Swelling [Recovered/Resolved]
  - Skin exfoliation [Not Recovered/Not Resolved]

NARRATIVE: CASE EVENT DATE: 20250110
